FAERS Safety Report 4807870-3 (Version None)
Quarter: 2005Q4

REPORT INFORMATION
  Report Type: 
  Country: None (occurrence: None)
  Receive Date: 20051020
  Receipt Date: 20051010
  Transmission Date: 20060501
  Serious: Yes (Hospitalization, Other)
  Sender: FDA-Public Use
  Company Number: HQWYE947710OCT05

PATIENT
  Age: 29 Year
  Sex: Female

DRUGS (10)
  1. EFFEXOR [Suspect]
     Dosage: SEE IMAGE
  2. QUETIAPINE FUMARATE [Suspect]
     Dosage: 150 MG 1X PER 1 DAY, ORAL
     Route: 048
     Dates: end: 20030213
  3. STILONOX (ZOPIDEM, ) [Suspect]
     Indication: CONVULSION
     Dosage: ORAL
     Route: 048
  4. VALPROATE SODIUM [Suspect]
     Indication: CONVULSION
     Dosage: SEE IMAGE
     Route: 048
  5. ACETAMINOPHEN [Concomitant]
  6. SANDOMIGRAN (PIZOTIFEN MALEATE0 [Concomitant]
  7. MERSYNDOL (CODEINE PHOSPHATE/DOXYLAMINE SUCCINATE/PARACETAMOL) [Concomitant]
  8. DIAZEPAM [Concomitant]
  9. PROMETHAZINE HYDROCHLORIDE TAB [Suspect]
  10. SALBUTAMOL (SALBUTAMOL) [Concomitant]

REACTIONS (3)
  - DRUG INTERACTION [None]
  - NEUROLEPTIC MALIGNANT SYNDROME [None]
  - RHABDOMYOLYSIS [None]
